FAERS Safety Report 4664164-7 (Version None)
Quarter: 2005Q2

REPORT INFORMATION
  Report Type: 
  Country: None (occurrence: None)
  Receive Date: 20050516
  Receipt Date: 20050516
  Transmission Date: 20051028
  Serious: Yes (Life-Threatening, Hospitalization)
  Sender: FDA-Public Use
  Company Number: None

PATIENT
  Age: 57 Year
  Sex: Male
  Weight: 77 kg

DRUGS (9)
  1. IBUPROFEN [Suspect]
     Indication: PAIN
     Dosage: UP TO 4000MG  QD   ORAL
     Route: 048
     Dates: start: 20041109, end: 20041209
  2. IBUPROFEN [Suspect]
     Indication: SELF-MEDICATION
     Dosage: UP TO 4000MG  QD   ORAL
     Route: 048
     Dates: start: 20041109, end: 20041209
  3. LISINOPRIL [Suspect]
     Indication: HYPERTENSION
     Dosage: 10MG  QD  ORAL
     Route: 048
     Dates: start: 20041008, end: 20041209
  4. ATENOLOL [Concomitant]
  5. FELODOPINE [Concomitant]
  6. HYDROCHLOROTHIAZIDE [Concomitant]
  7. OMEPRAZOLE [Concomitant]
  8. LIPITOR VS PLACEBO STUDY DRUG [Concomitant]
  9. LIPITOR COMBO VS PLACEBO [Concomitant]

REACTIONS (3)
  - HYPOKALAEMIA [None]
  - RENAL FAILURE ACUTE [None]
  - SELF-MEDICATION [None]
